FAERS Safety Report 7247446-4 (Version None)
Quarter: 2011Q1

REPORT INFORMATION
  Report Type: 
  Country: None (occurrence: None)
  Receive Date: 20110127
  Receipt Date: 20110124
  Transmission Date: 20110831
  Serious: Yes (Death, Hospitalization)
  Sender: FDA-Public Use
  Company Number: PHHY2010US66467

PATIENT
  Sex: Male
  Weight: 43.084 kg

DRUGS (2)
  1. DIGOXIN [Concomitant]
  2. EXJADE [Suspect]
     Indication: BLOOD DISORDER
     Dosage: 1000 MG, QD
     Route: 048
     Dates: start: 20060404

REACTIONS (8)
  - NEOPLASM MALIGNANT [None]
  - NEUTROPENIC INFECTION [None]
  - SEPSIS [None]
  - PYREXIA [None]
  - ANAEMIA [None]
  - ACUTE MYELOID LEUKAEMIA [None]
  - RENAL FAILURE [None]
  - HAEMORRHAGE [None]
